FAERS Safety Report 9785726 (Version 1)
Quarter: 2013Q4

REPORT INFORMATION
  Report Type: Spontaneous
  Country: ES (occurrence: None)
  Receive Date: 20131224
  Receipt Date: 20131224
  Transmission Date: 20140711
  Serious: Yes (Hospitalization)
  Sender: FDA-Public Use
  Company Number: AUR-APL-2013-10601

PATIENT
  Age: 52 Year
  Sex: Male

DRUGS (1)
  1. METFORMIN [Suspect]
     Indication: TYPE 2 DIABETES MELLITUS

REACTIONS (8)
  - Lactic acidosis [None]
  - Malaise [None]
  - Diarrhoea [None]
  - Hypoglycaemia [None]
  - Renal failure acute [None]
  - Hyperkalaemia [None]
  - Continuous haemodiafiltration [None]
  - Depressed level of consciousness [None]
